FAERS Safety Report 12233777 (Version 1)
Quarter: 2016Q2

REPORT INFORMATION
  Report Type: Spontaneous
  Country: US (occurrence: US)
  Receive Date: 20160404
  Receipt Date: 20160404
  Transmission Date: 20160815
  Serious: No
  Sender: FDA-Public Use
  Company Number: US-BAYER-2016-063668

PATIENT
  Age: 76 Year
  Sex: Male
  Weight: 76.19 kg

DRUGS (1)
  1. CLARITIN-D 24 HOUR [Suspect]
     Active Substance: LORATADINE\PSEUDOEPHEDRINE SULFATE
     Indication: UPPER-AIRWAY COUGH SYNDROME
     Dosage: 1 DF, UNK
     Route: 048
     Dates: start: 20160327, end: 20160328

REACTIONS (4)
  - Product use issue [None]
  - Dysuria [Recovered/Resolved]
  - Constipation [Recovered/Resolved]
  - Therapeutic response unexpected [None]

NARRATIVE: CASE EVENT DATE: 20160327
